FAERS Safety Report 5230341-X (Version None)
Quarter: 2007Q1

REPORT INFORMATION
  Report Type: 
  Country: None (occurrence: None)
  Receive Date: 20070206
  Receipt Date: 20070129
  Transmission Date: 20070707
  Serious: Yes (Hospitalization)
  Sender: FDA-Public Use
  Company Number: US-JNJFOC-20070200009

PATIENT
  Sex: Female
  Weight: 63.5 kg

DRUGS (18)
  1. DURAGESIC-100 [Suspect]
     Indication: PAIN
     Route: 062
  2. ZYRTEC [Concomitant]
     Indication: URTICARIA
     Route: 048
  3. ZYRTEC [Concomitant]
     Indication: LYME DISEASE
     Route: 048
  4. ALLEGRA [Concomitant]
     Indication: URTICARIA
     Route: 048
  5. ALLEGRA [Concomitant]
     Indication: LYME DISEASE
     Route: 048
  6. ZANAFLEX [Concomitant]
     Indication: RHEUMATOID ARTHRITIS
     Route: 048
  7. ZANAFLEX [Concomitant]
     Indication: MUSCLE SPASMS
     Route: 048
  8. METHOTREXATE [Concomitant]
     Indication: RHEUMATOID ARTHRITIS
     Route: 058
  9. METHOTREXATE [Concomitant]
     Indication: CHEMOTHERAPY
     Route: 058
  10. AMITRIPTYLINE HCL [Concomitant]
     Indication: MIGRAINE
     Route: 048
  11. VERAPAMIL [Concomitant]
     Indication: MIGRAINE
     Route: 048
  12. ORENCIA [Concomitant]
     Indication: RHEUMATOID ARTHRITIS
     Route: 042
  13. VALIUM [Concomitant]
     Indication: RHEUMATOID ARTHRITIS
     Route: 048
  14. VALIUM [Concomitant]
     Indication: MUSCLE SPASMS
     Route: 048
  15. FINRICET [Concomitant]
     Indication: MIGRAINE
     Route: 048
  16. SINGULAIR [Concomitant]
     Indication: DRUG USE FOR UNKNOWN INDICATION
     Route: 048
  17. FOLIC ACID [Concomitant]
     Indication: DRUG USE FOR UNKNOWN INDICATION
     Route: 048
  18. PHENERGAN [Concomitant]
     Indication: NAUSEA
     Route: 048

REACTIONS (4)
  - GASTRIC ULCER [None]
  - HAEMATEMESIS [None]
  - INADEQUATE ANALGESIA [None]
  - MIGRAINE [None]
